FAERS Safety Report 6036259-7 (Version None)
Quarter: 2009Q1

REPORT INFORMATION
  Report Type: 
  Country: None (occurrence: None)
  Receive Date: 20090113
  Receipt Date: 20090107
  Transmission Date: 20090719
  Serious: Yes (Other)
  Sender: FDA-Public Use
  Company Number: PHHY2008JP24954

PATIENT

DRUGS (2)
  1. NEORAL [Suspect]
     Indication: APLASTIC ANAEMIA
     Dosage: UNK
     Route: 048
     Dates: start: 20070601
  2. DRUG THERAPY NOS [Concomitant]

REACTIONS (2)
  - BLINDNESS TRANSIENT [None]
  - MENTAL DISORDER [None]
